FAERS Safety Report 17238567 (Version 1)
Quarter: 2020Q1

REPORT INFORMATION
  Report Type: Spontaneous
  Country: US (occurrence: US)
  Receive Date: 20200104
  Receipt Date: 20200104
  Transmission Date: 20200409
  Serious: Yes (Life-Threatening, Hospitalization, Disabling)
  Sender: FDA-Public Use
  Company Number: None

PATIENT
  Age: 62 Year
  Sex: Male

DRUGS (3)
  1. IBUPROFEN. [Concomitant]
     Active Substance: IBUPROFEN
  2. PREDNISONE. [Concomitant]
     Active Substance: PREDNISONE
  3. SIMPONI [Suspect]
     Active Substance: GOLIMUMAB
     Indication: RHEUMATOID ARTHRITIS
     Dosage: ?          OTHER ROUTE:INFUSION?
     Dates: start: 20190903, end: 20190904

REACTIONS (2)
  - Bedridden [None]
  - Skin exfoliation [None]

NARRATIVE: CASE EVENT DATE: 20190905
